FAERS Safety Report 10726621 (Version 1)
Quarter: 2015Q1

REPORT INFORMATION
  Report Type: Spontaneous
  Country: US (occurrence: None)
  Receive Date: 20150120
  Receipt Date: 20150120
  Transmission Date: 20150721
  Serious: No
  Sender: FDA-Public Use
  Company Number: None

PATIENT
  Age: 67 Year
  Sex: Female
  Weight: 101.15 kg

DRUGS (1)
  1. ORENCIA [Suspect]
     Active Substance: ABATACEPT
     Indication: RHEUMATOID ARTHRITIS
     Dosage: Q 2 WEEKS FOR 3 DOSE
     Route: 042
     Dates: start: 20150114, end: 20150114

REACTIONS (2)
  - Urticaria [None]
  - Pruritus [None]

NARRATIVE: CASE EVENT DATE: 20150114
